FAERS Safety Report 25066380 (Version 1)
Quarter: 2025Q1

REPORT INFORMATION
  Report Type: Spontaneous
  Country: DE (occurrence: DE)
  Receive Date: 20250312
  Receipt Date: 20250312
  Transmission Date: 20250408
  Serious: Yes (Hospitalization, Other)
  Sender: STRIDES
  Company Number: DE-STRIDES ARCOLAB LIMITED-2025SP003000

PATIENT

DRUGS (5)
  1. OLANZAPINE [Interacting]
     Active Substance: OLANZAPINE
     Indication: Mental disorder
     Route: 065
  2. PROMETHAZINE HYDROCHLORIDE [Interacting]
     Active Substance: PROMETHAZINE HYDROCHLORIDE
     Indication: Mental disorder
     Route: 065
  3. LITHIUM [Interacting]
     Active Substance: LITHIUM
     Indication: Mental disorder
     Route: 065
  4. MELPERONE [Interacting]
     Active Substance: MELPERONE
     Indication: Mental disorder
     Route: 065
  5. QUETIAPINE [Interacting]
     Active Substance: QUETIAPINE
     Indication: Mental disorder
     Route: 065

REACTIONS (5)
  - Dopamine dysregulation syndrome [Unknown]
  - Neuroleptic malignant syndrome [Unknown]
  - Drug interaction [Unknown]
  - Extrapyramidal disorder [Unknown]
  - Off label use [Unknown]
